FAERS Safety Report 6771123-7 (Version None)
Quarter: 2010Q2

REPORT INFORMATION
  Report Type: 
  Country: None (occurrence: None)
  Receive Date: 20100616
  Receipt Date: 20100608
  Transmission Date: 20101027
  Serious: Yes (Hospitalization)
  Sender: FDA-Public Use
  Company Number: US-JNJFOC-20100603501

PATIENT
  Sex: Female
  Weight: 79.38 kg

DRUGS (3)
  1. TRAMADOL HCL [Suspect]
     Indication: PROCEDURAL PAIN
     Dosage: 1 EVERY 8 HOURS
     Route: 048
  2. ELAVIL [Concomitant]
     Indication: FIBROMYALGIA
     Dosage: ONCE DAILY
     Route: 048
  3. ACTOS [Concomitant]
     Indication: TYPE 2 DIABETES MELLITUS
     Dosage: ONCE DAILY
     Route: 048

REACTIONS (1)
  - LOSS OF CONSCIOUSNESS [None]
